FAERS Safety Report 7297505-5 (Version None)
Quarter: 2011Q1

REPORT INFORMATION
  Report Type: 
  Country: None (occurrence: None)
  Receive Date: 20110216
  Receipt Date: 20110211
  Transmission Date: 20110831
  Serious: Yes (Other)
  Sender: FDA-Public Use
  Company Number: GB-PFIZER INC-2007307871

PATIENT
  Sex: Male

DRUGS (4)
  1. ACETYLSALICYLIC ACID [Suspect]
     Route: 065
  2. SEROXAT [Suspect]
     Route: 065
  3. IBUPROFEN [Suspect]
     Route: 065
  4. ALCOHOL [Suspect]
     Route: 065

REACTIONS (4)
  - OVERDOSE [None]
  - DRUG WITHDRAWAL SYNDROME [None]
  - COMPLETED SUICIDE [None]
  - SUICIDE ATTEMPT [None]
